FAERS Safety Report 8189564-2 (Version None)
Quarter: 2012Q1

REPORT INFORMATION
  Report Type: 
  Country: None (occurrence: None)
  Receive Date: 20120307
  Receipt Date: 20120228
  Transmission Date: 20120608
  Serious: Yes (Hospitalization)
  Sender: FDA-Public Use
  Company Number: IE-US-EMD SERONO, INC.-7110453

PATIENT
  Sex: Female

DRUGS (5)
  1. LUVERIS [Suspect]
     Dates: start: 20111124
  2. GONAL-F [Suspect]
     Indication: IN VITRO FERTILISATION
     Dates: start: 20111202, end: 20111211
  3. CHORIONIC GONADOTROPIN [Concomitant]
     Indication: PRODUCT USED FOR UNKNOWN INDICATION
     Dates: start: 20111204
  4. LUVERIS [Suspect]
     Indication: IN VITRO FERTILISATION
     Dates: start: 20111202, end: 20111211
  5. GONAL-F [Suspect]
     Dates: start: 20111124

REACTIONS (4)
  - OVARIAN HYPERSTIMULATION SYNDROME [None]
  - DEHYDRATION [None]
  - ABDOMINAL DISTENSION [None]
  - VOMITING [None]
